FAERS Safety Report 7784730-X (Version None)
Quarter: 2011Q3

REPORT INFORMATION
  Report Type: 
  Country: None (occurrence: None)
  Receive Date: 20110926
  Receipt Date: 20110823
  Transmission Date: 20111222
  Serious: Yes (Death)
  Sender: FDA-Public Use
  Company Number: DSA_47702_2011

PATIENT
  Sex: Female

DRUGS (1)
  1. XENAZINE [Suspect]
     Indication: CHOREOATHETOSIS
     Dosage: (25 MG, 2 TABS 6AM, 1 TAB NOON, 2 TABS 6PM AND 1 TAB 12AM ORAL)
     Route: 048
     Dates: start: 20100920, end: 20110820

REACTIONS (1)
  - DEATH [None]
